FAERS Safety Report 11050627 (Version 1)
Quarter: 2015Q2

REPORT INFORMATION
  Report Type: Spontaneous
  Country: BR (occurrence: BR)
  Receive Date: 20150421
  Receipt Date: 20150421
  Transmission Date: 20150821
  Serious: Yes (Hospitalization)
  Sender: FDA-Public Use
  Company Number: BR-AMGEN-BRASP2015038038

PATIENT
  Age: 63 Year
  Sex: Female

DRUGS (12)
  1. IRINOTECAN HYDROCHLORIDE. [Suspect]
     Active Substance: IRINOTECAN HYDROCHLORIDE
     Indication: PANCREATIC CARCINOMA
     Dosage: 261.8 MG, 1 IN 14 D
     Route: 065
     Dates: start: 20140903
  2. DEXAMETHASONE. [Suspect]
     Active Substance: DEXAMETHASONE
     Indication: PROPHYLACTIC CHEMOTHERAPY
     Dosage: UNK
     Route: 065
  3. VONAU [Concomitant]
     Dosage: ADMINISTERED IF NECESSARY (8 MG)
     Route: 048
  4. DRAMAMINE [Concomitant]
     Active Substance: DIMENHYDRINATE
     Dosage: ADMINISTERED IF NECESSARY
     Route: 048
  5. BROMOPRIDE [Concomitant]
     Active Substance: BROMOPRIDE
     Dosage: ADMINISTERED IF NECESSARY (10 MG,1 IN 8 HR)
     Route: 048
  6. DECADRON [Concomitant]
     Active Substance: DEXAMETHASONE
     Dosage: ADMINISTERED IF NECESSARY (4 MG, 1 IN 12 HR)
     Route: 048
  7. TEVAOXALI [Suspect]
     Active Substance: OXALIPLATIN
     Indication: PANCREATIC CARCINOMA
     Dosage: 123.6 MG, 1 IN 14 D
     Route: 065
     Dates: start: 20140903
  8. FAULDFLUOR [Suspect]
     Active Substance: FLUOROURACIL
     Indication: PANCREATIC CARCINOMA
     Dosage: 581.7 MG + 3490MG CONTINUOUS INFUSION PUMP 46 HRS (I IN 14 D)
     Route: 065
     Dates: start: 20140903
  9. FAULDLEUCO [Suspect]
     Active Substance: LEUCOVORIN CALCIUM
     Indication: PANCREATIC CARCINOMA
     Dosage: 581.76 MG, 1 IN 14 D
     Route: 065
     Dates: start: 20140903
  10. FILGRASTIM [Suspect]
     Active Substance: FILGRASTIM
     Indication: PANCYTOPENIA
     Dosage: UNK
     Route: 065
  11. KYTRIL [Suspect]
     Active Substance: GRANISETRON HYDROCHLORIDE
     Indication: PROPHYLACTIC CHEMOTHERAPY
     Dosage: 2.1 MG, UNK
     Route: 065
  12. PANTOPRAZOLE [Concomitant]
     Active Substance: PANTOPRAZOLE SODIUM
     Indication: GASTRITIS
     Dosage: 20 MG, 1 IN 1 D
     Route: 048

REACTIONS (5)
  - White blood cell count decreased [Recovered/Resolved]
  - Dehydration [Recovered/Resolved]
  - Nausea [Recovered/Resolved]
  - Pancytopenia [Recovered/Resolved]
  - Vomiting [Recovered/Resolved]

NARRATIVE: CASE EVENT DATE: 2014
